FAERS Safety Report 24208002 (Version 2)
Quarter: 2024Q3

REPORT INFORMATION
  Report Type: Report from Study
  Country: US (occurrence: US)
  Receive Date: 20240814
  Receipt Date: 20240913
  Transmission Date: 20241017
  Serious: Yes (Other)
  Sender: CALLIDITAS THERAPEUTICS
  Company Number: US-Calliditas-2024CAL01493

PATIENT
  Age: 53 Year
  Sex: Male
  Weight: 77.2 kg

DRUGS (1)
  1. TARPEYO [Suspect]
     Active Substance: BUDESONIDE
     Indication: IgA nephropathy
     Route: 048
     Dates: start: 20240220

REACTIONS (2)
  - Diabetes mellitus [Unknown]
  - Hypercholesterolaemia [Unknown]
